FAERS Safety Report 5103371-6 (Version None)
Quarter: 2006Q3

REPORT INFORMATION
  Report Type: 
  Country: None (occurrence: None)
  Receive Date: 20060908
  Receipt Date: 20060823
  Transmission Date: 20061208
  Serious: Yes (Hospitalization)
  Sender: FDA-Public Use
  Company Number: JP-2006-024365

PATIENT
  Age: 34 Year
  Sex: Female

DRUGS (3)
  1. BETAFERON (INTERFERON BEA - 1B) INJECTION, 250?G [Suspect]
     Indication: MULTIPLE SCLEROSIS
  2. LIORESAL [Concomitant]
  3. KETAS (IBUDILAST) [Concomitant]

REACTIONS (1)
  - INTERSTITIAL LUNG DISEASE [None]
